FAERS Safety Report 9382373 (Version 2)
Quarter: 2013Q3

REPORT INFORMATION
  Report Type: Report from Study
  Country: AU (occurrence: AU)
  Receive Date: 20130703
  Receipt Date: 20130712
  Transmission Date: 20140515
  Serious: Yes (Other)
  Sender: FDA-Public Use
  Company Number: PHHY2013AU069499

PATIENT
  Sex: Female

DRUGS (1)
  1. CLOZARIL [Suspect]
     Indication: PSYCHOTIC DISORDER
     Dosage: 25 MG, UNK
     Route: 048
     Dates: start: 20130327, end: 20130501

REACTIONS (4)
  - Fall [Recovered/Resolved]
  - Hypokinesia [Recovered/Resolved]
  - Sedation [Recovered/Resolved]
  - Drug intolerance [Unknown]
